FAERS Safety Report 4738686-4 (Version None)
Quarter: 2005Q3

REPORT INFORMATION
  Report Type: 
  Country: None (occurrence: None)
  Receive Date: 20050809
  Receipt Date: 20050809
  Transmission Date: 20060218
  Serious: Yes (Other)
  Sender: FDA-Public Use
  Company Number: None

PATIENT
  Sex: Female
  Weight: 83.9154 kg

DRUGS (13)
  1. KETOCONAZOLE [Suspect]
     Indication: FUNGAL INFECTION
     Dosage: 100 MG  EVERY DAY  ORAL
     Route: 048
     Dates: start: 20030515, end: 20030907
  2. KETOCONAZOLE [Suspect]
     Indication: URTICARIA
     Dosage: 100 MG  EVERY DAY  ORAL
     Route: 048
     Dates: start: 20030515, end: 20030907
  3. HISMANAL [Concomitant]
  4. CLARITIN [Concomitant]
  5. CLARITIN-D [Concomitant]
  6. SPORANOX [Concomitant]
  7. DIFLUCAN [Concomitant]
  8. ELAVIL [Concomitant]
  9. PREDNISONE [Concomitant]
  10. BENADRYL [Concomitant]
  11. EPINEPHRINE [Concomitant]
  12. VARIOUS OTHER ANTIHISTAMINES [Concomitant]
  13. ANTIDEPRESSENTS [Concomitant]

REACTIONS (3)
  - PHARMACEUTICAL PRODUCT COMPLAINT [None]
  - THERAPEUTIC RESPONSE UNEXPECTED WITH DRUG SUBSTITUTION [None]
  - URTICARIA [None]
